FAERS Safety Report 23687977 (Version 2)
Quarter: 2024Q2

REPORT INFORMATION
  Report Type: Spontaneous
  Country: JP (occurrence: None)
  Receive Date: 20240329
  Receipt Date: 20240410
  Transmission Date: 20240715
  Serious: Yes (Other)
  Sender: FDA-Public Use
  Company Number: 2024A071207

PATIENT
  Sex: Female

DRUGS (3)
  1. LYNPARZA [Suspect]
     Active Substance: OLAPARIB
     Indication: Ovarian cancer
     Route: 048
     Dates: start: 202311, end: 20240304
  2. HERBALS [Suspect]
     Active Substance: HERBALS
     Dosage: DOSE UNKNOWN
     Dates: start: 202401
  3. HERBALS [Suspect]
     Active Substance: HERBALS
     Dosage: DOSE UNKNOWN
     Dates: start: 202401

REACTIONS (4)
  - Interstitial lung disease [Recovering/Resolving]
  - Pyrexia [Recovering/Resolving]
  - Nasopharyngitis [Recovering/Resolving]
  - Lung opacity [Recovering/Resolving]

NARRATIVE: CASE EVENT DATE: 20240304
